FAERS Safety Report 15980868 (Version 2)
Quarter: 2019Q1

REPORT INFORMATION
  Report Type: Spontaneous
  Country: IN (occurrence: IN)
  Receive Date: 20190219
  Receipt Date: 20190322
  Transmission Date: 20190418
  Serious: Yes (Hospitalization, Disabling, Other)
  Sender: FDA-Public Use
  Company Number: IN-MYLANLABS-2019M1015398

PATIENT
  Sex: Female

DRUGS (3)
  1. PROMETHAZINE [Suspect]
     Active Substance: PROMETHAZINE\PROMETHAZINE HYDROCHLORIDE
     Indication: ANAESTHESIA
     Dosage: 25 MILLIGRAM
     Route: 013
  2. PENTAZOCINE [Suspect]
     Active Substance: PENTAZOCINE
     Indication: ANAESTHESIA
     Dosage: 30 MILLIGRAM
     Route: 013
     Dates: start: 20180101, end: 20180101
  3. ATROPINE. [Suspect]
     Active Substance: ATROPINE
     Indication: ANAESTHESIA
     Dosage: 0.4 MILLIGRAM
     Route: 013

REACTIONS (3)
  - Incorrect route of product administration [Unknown]
  - Gangrene [Recovered/Resolved]
  - Extremity contracture [Recovered/Resolved]

NARRATIVE: CASE EVENT DATE: 20180101
